FAERS Safety Report 9060701 (Version 2)
Quarter: 2015Q1

REPORT INFORMATION
  Report Type: Report from Study
  Country: US (occurrence: US)
  Receive Date: 20130204
  Receipt Date: 20150327
  Transmission Date: 20150721
  Serious: Yes (Death)
  Sender: FDA-Public Use
  Company Number: US-ROCHE-1186027

PATIENT
  Sex: Male
  Weight: 108.1 kg

DRUGS (2)
  1. XELODA [Suspect]
     Active Substance: CAPECITABINE
     Indication: COLON CANCER
     Dosage: 4 TABLETS FOR 14 DAYS CYCLE.
     Route: 048
     Dates: start: 20121108
  2. AVASTIN [Suspect]
     Active Substance: BEVACIZUMAB
     Indication: COLON CANCER
     Dosage: RECEIVED ON 27/FEB/2012 AND 12/MAR/2012 AT SAME DOSE.
     Route: 042

REACTIONS (1)
  - Death [Fatal]
